FAERS Safety Report 11754583 (Version 1)
Quarter: 2015Q4

REPORT INFORMATION
  Report Type: Spontaneous
  Country: US (occurrence: None)
  Receive Date: 20151118
  Receipt Date: 20151118
  Transmission Date: 20160304
  Serious: Yes (Other)
  Sender: FDA-Public Use
  Company Number: None

PATIENT
  Age: 55 Year
  Sex: Female
  Weight: 136.53 kg

DRUGS (7)
  1. BACLOFEN. [Suspect]
     Active Substance: BACLOFEN
     Indication: INTERVERTEBRAL DISC PROTRUSION
     Dosage: 1 PILL FOUR TIMES DAILY
     Route: 048
     Dates: start: 20151117, end: 20151117
  2. ALBUTEROL NEBULIZER [Concomitant]
     Active Substance: ALBUTEROL
  3. GABAPINTON [Concomitant]
  4. ALBUTEROL INHALER [Concomitant]
     Active Substance: ALBUTEROL
  5. NAPROXEN. [Concomitant]
     Active Substance: NAPROXEN
  6. VITAMIN D3 [Concomitant]
     Active Substance: CHOLECALCIFEROL
  7. PRILOSEC [Concomitant]
     Active Substance: OMEPRAZOLE MAGNESIUM

REACTIONS (12)
  - Psychomotor hyperactivity [None]
  - Feeling abnormal [None]
  - Logorrhoea [None]
  - Nervousness [None]
  - Muscle tightness [None]
  - Fear [None]
  - Dyspnoea [None]
  - Asthma [None]
  - Dyskinesia [None]
  - Anxiety [None]
  - Tremor [None]
  - Respiratory rate increased [None]

NARRATIVE: CASE EVENT DATE: 20151117
